FAERS Safety Report 5659298-4 (Version None)
Quarter: 2008Q1

REPORT INFORMATION
  Report Type: 
  Country: None (occurrence: None)
  Receive Date: 20080311
  Receipt Date: 20070817
  Transmission Date: 20080703
  Serious: Yes (Other)
  Sender: FDA-Public Use
  Company Number: US-BAYER-200712015BCC

PATIENT
  Age: 84 Year
  Sex: Male
  Weight: 83 kg

DRUGS (9)
  1. ALEVE [Suspect]
     Indication: FACIAL PAIN
     Dosage: TOTAL DAILY DOSE: 440 MG  UNIT DOSE: 220 MG
     Route: 048
  2. ST. JOSEPH ASPIRIN [Concomitant]
     Route: 048
  3. ZETIA [Concomitant]
  4. PAROXETINE HCL [Concomitant]
  5. AMLODIPINE [Concomitant]
  6. LIPITOR [Concomitant]
  7. TOPROL [Concomitant]
  8. BENICAR HCT [Concomitant]
  9. CARB-LEVO [Concomitant]

REACTIONS (1)
  - ULCER [None]
